FAERS Safety Report 13795869 (Version 1)
Quarter: 2017Q3

REPORT INFORMATION
  Report Type: Spontaneous
  Country: PT (occurrence: PT)
  Receive Date: 20170726
  Receipt Date: 20170726
  Transmission Date: 20171127
  Serious: Yes (Hospitalization, Other)
  Sender: FDA-Public Use
  Company Number: PT-MYLANLABS-2017M1043042

PATIENT

DRUGS (5)
  1. TAMSULOSIN [Suspect]
     Active Substance: TAMSULOSIN
     Dosage: UNK
  2. AMIODARONE [Suspect]
     Active Substance: AMIODARONE
     Indication: PRODUCT USED FOR UNKNOWN INDICATION
     Dosage: UNK
  3. SPIRONOLACTONE. [Suspect]
     Active Substance: SPIRONOLACTONE
     Dosage: UNK
  4. FUROSEMIDE. [Suspect]
     Active Substance: FUROSEMIDE
     Dosage: UNK
  5. ENALAPRIL [Suspect]
     Active Substance: ENALAPRIL
     Indication: PRODUCT USED FOR UNKNOWN INDICATION
     Dosage: UNK

REACTIONS (3)
  - Renal injury [Unknown]
  - Demyelinating polyneuropathy [Unknown]
  - Hyperthyroidism [Unknown]
